FAERS Safety Report 15188240 (Version 3)
Quarter: 2018Q4

REPORT INFORMATION
  Report Type: Report from Study
  Country: FR (occurrence: FR)
  Receive Date: 20180724
  Receipt Date: 20181126
  Transmission Date: 20190204
  Serious: Yes (Hospitalization, Other)
  Sender: FDA-Public Use
  Company Number: FR-BRISTOL-MYERS SQUIBB COMPANY-BMS-2018-067255

PATIENT
  Age: 57 Year
  Sex: Female

DRUGS (3)
  1. NIVOLUMAB [Suspect]
     Active Substance: NIVOLUMAB
     Indication: LUNG NEOPLASM MALIGNANT
     Dosage: 192 MG, Q2WK
     Route: 042
     Dates: start: 20161207
  2. NIVOLUMAB [Suspect]
     Active Substance: NIVOLUMAB
     Indication: PRODUCT USED FOR UNKNOWN INDICATION
     Dosage: 192 MG, Q2WK
     Route: 042
     Dates: end: 20180531
  3. NIVOLUMAB [Suspect]
     Active Substance: NIVOLUMAB
     Indication: PRODUCT USED FOR UNKNOWN INDICATION
     Dosage: 192 MG, Q2WK
     Route: 042
     Dates: start: 20180712

REACTIONS (6)
  - Transitional cell carcinoma [Recovered/Resolved]
  - Malignant neoplasm progression [Recovered/Resolved]
  - Left ventricular dysfunction [Recovering/Resolving]
  - Haematuria [Unknown]
  - Hypokinesia [Unknown]
  - Hypothyroidism [Recovered/Resolved]

NARRATIVE: CASE EVENT DATE: 20170814
